FAERS Safety Report 18149660 (Version 1)
Quarter: 2020Q3

REPORT INFORMATION
  Report Type: Spontaneous
  Country: US (occurrence: US)
  Receive Date: 20200813
  Receipt Date: 20200813
  Transmission Date: 20201103
  Serious: Yes (Hospitalization)
  Sender: FDA-Public Use
  Company Number: None

PATIENT
  Age: 62 Year
  Sex: Female

DRUGS (22)
  1. VERZENIO [Suspect]
     Active Substance: ABEMACICLIB
     Indication: BREAST CANCER FEMALE
     Dosage: ?          OTHER DOSE:1 TAB;?
     Route: 048
     Dates: start: 20191127
  2. ONDANSETRON [Suspect]
     Active Substance: ONDANSETRON
  3. OXYCODONE [Suspect]
     Active Substance: OXYCODONE
  4. PREDNISONE. [Suspect]
     Active Substance: PREDNISONE
  5. STIMULANT [Suspect]
     Active Substance: UNSPECIFIED INGREDIENT
  6. VENLAFAXINE [Suspect]
     Active Substance: VENLAFAXINE HYDROCHLORIDE
  7. CYCLOBENZAPR [Suspect]
     Active Substance: CYCLOBENZAPRINE
  8. ELIQUIS [Suspect]
     Active Substance: APIXABAN
  9. FLOVENT HFA [Suspect]
     Active Substance: FLUTICASONE PROPIONATE
  10. FLUCONAZOLE. [Suspect]
     Active Substance: FLUCONAZOLE
  11. MONTELUKAST [Suspect]
     Active Substance: MONTELUKAST SODIUM
  12. ADVAIR DISKUS [Suspect]
     Active Substance: FLUTICASONE PROPIONATE\SALMETEROL XINAFOATE
  13. GABAPENTIN. [Suspect]
     Active Substance: GABAPENTIN
  14. ACETAMIN [Suspect]
     Active Substance: ACETAMINOPHEN
  15. CEFDINIR. [Suspect]
     Active Substance: CEFDINIR
  16. LEVOTHYROXIN [Suspect]
     Active Substance: LEVOTHYROXINE
  17. PROCHLORPER [Concomitant]
  18. ALBUTEROL NEB [Suspect]
     Active Substance: ALBUTEROL
  19. LORAZEPAM. [Suspect]
     Active Substance: LORAZEPAM
  20. SPIRONOLACT [Suspect]
     Active Substance: SPIRONOLACTONE
  21. ALBUTEROL AER [Suspect]
     Active Substance: ALBUTEROL
  22. SPIRIVA [Suspect]
     Active Substance: TIOTROPIUM BROMIDE MONOHYDRATE

REACTIONS (3)
  - Gastrooesophageal reflux disease [None]
  - Diarrhoea [None]
  - Surgery [None]

NARRATIVE: CASE EVENT DATE: 20200813
